FAERS Safety Report 19403797 (Version 4)
Quarter: 2021Q3

REPORT INFORMATION
  Report Type: Report from Study
  Country: None (occurrence: US)
  Receive Date: 20210610
  Receipt Date: 20210927
  Transmission Date: 20211014
  Serious: Yes (Hospitalization, Other)
  Sender: FDA-Public Use
  Company Number: US-ABBVIE-21K-163-3940090-00

PATIENT
  Age: 55 Year
  Sex: Female

DRUGS (2)
  1. HUMIRA [Suspect]
     Active Substance: ADALIMUMAB
     Indication: HIDRADENITIS
     Dosage: CITRATE FREE
     Route: 058
  2. HUMIRA [Suspect]
     Active Substance: ADALIMUMAB
     Indication: PSORIASIS
     Route: 058

REACTIONS (17)
  - Diabetic gastroparesis [Unknown]
  - Chest pain [Unknown]
  - Liver disorder [Unknown]
  - Aplastic anaemia [Unknown]
  - Neoplasm malignant [Recovered/Resolved]
  - Splenomegaly [Unknown]
  - Vomiting [Unknown]
  - Asthenia [Unknown]
  - Weight decreased [Unknown]
  - Cough [Unknown]
  - Platelet count decreased [Unknown]
  - Blood iron decreased [Unknown]
  - Headache [Unknown]
  - Cardiac disorder [Unknown]
  - Magnesium deficiency [Unknown]
  - Illness [Not Recovered/Not Resolved]
  - Haemoglobin decreased [Unknown]

NARRATIVE: CASE EVENT DATE: 202104
